FAERS Safety Report 4653289-8 (Version None)
Quarter: 2005Q2

REPORT INFORMATION
  Report Type: 
  Country: None (occurrence: None)
  Receive Date: 20050504
  Receipt Date: 20050504
  Transmission Date: 20051028
  Serious: Yes (Life-Threatening, Hospitalization)
  Sender: FDA-Public Use
  Company Number: None

PATIENT
  Sex: Male
  Weight: 124 kg

DRUGS (8)
  1. PLAVIX [Suspect]
     Indication: ISCHAEMIA
     Dosage: 75 MG PO DAILY
     Route: 048
     Dates: start: 20050502, end: 20050503
  2. PLAVIX [Suspect]
     Indication: PROPHYLAXIS
     Dosage: 75 MG PO DAILY
     Route: 048
     Dates: start: 20050502, end: 20050503
  3. AMARYL [Concomitant]
  4. HYDROCHLOROTHIAZIDE [Concomitant]
  5. PAROXETINE [Concomitant]
  6. NORVASC [Concomitant]
  7. ACCUPRIL [Concomitant]
  8. PLAVIX [Concomitant]

REACTIONS (2)
  - OBSTRUCTIVE AIRWAYS DISORDER [None]
  - SWOLLEN TONGUE [None]
